FAERS Safety Report 15484098 (Version 1)
Quarter: 2018Q4

REPORT INFORMATION
  Report Type: Spontaneous
  Country: FR (occurrence: FR)
  Receive Date: 20181010
  Receipt Date: 20181010
  Transmission Date: 20190205
  Serious: Yes (Hospitalization)
  Sender: FDA-Public Use
  Company Number: FR-INDIVIOR LIMITED-INDV-114684-2018

PATIENT
  Age: 33 Year
  Sex: Male

DRUGS (4)
  1. BUPRENORPHINE. [Suspect]
     Active Substance: BUPRENORPHINE
     Indication: PRODUCT USED FOR UNKNOWN INDICATION
     Dosage: UNK
     Route: 065
     Dates: start: 2010
  2. LYSERGIDE [Suspect]
     Active Substance: LYSERGIDE
     Indication: DRUG ABUSE
     Dosage: UNK
     Route: 065
     Dates: start: 2015, end: 2015
  3. ALCOHOL. [Suspect]
     Active Substance: ALCOHOL
     Indication: ALCOHOL ABUSE
     Dosage: 27 UNITS PER DAY
     Route: 048
     Dates: start: 1994
  4. NICOTIANA TABACUM [Suspect]
     Active Substance: TOBACCO LEAF
     Indication: TOBACCO USER
     Dosage: 20 CIG/DAY
     Route: 055
     Dates: start: 1997

REACTIONS (4)
  - Alcohol abuse [Recovering/Resolving]
  - Intentional product misuse [Recovered/Resolved]
  - Drug abuse [Recovering/Resolving]
  - Drug abuse [Recovered/Resolved]
